FAERS Safety Report 15073133 (Version 3)
Quarter: 2018Q3

REPORT INFORMATION
  Report Type: Spontaneous
  Country: US (occurrence: US)
  Receive Date: 20180627
  Receipt Date: 20180827
  Transmission Date: 20181010
  Serious: No
  Sender: FDA-Public Use
  Company Number: US-ASTRAZENECA-2018SE73052

PATIENT
  Sex: Male
  Weight: 113.4 kg

DRUGS (5)
  1. BYDUREON BCISE [Suspect]
     Active Substance: EXENATIDE
     Indication: TYPE 2 DIABETES MELLITUS
     Route: 058
     Dates: start: 201802
  2. JARDIANCE [Concomitant]
     Active Substance: EMPAGLIFLOZIN
     Indication: DIABETES MELLITUS
  3. ACTOS PLUS GENERIC [Concomitant]
     Indication: DIABETES MELLITUS
  4. ASPIRIN. [Concomitant]
     Active Substance: ASPIRIN
  5. BYDUREON [Suspect]
     Active Substance: EXENATIDE
     Indication: TYPE 2 DIABETES MELLITUS
     Route: 058
     Dates: start: 201802

REACTIONS (8)
  - Drug dose omission [Unknown]
  - Malaise [Unknown]
  - Circumstance or information capable of leading to medication error [Unknown]
  - Device leakage [Unknown]
  - Drug dispensing error [Unknown]
  - Body height decreased [Unknown]
  - Injection site extravasation [Unknown]
  - Underdose [Unknown]
